FAERS Safety Report 8130588-9 (Version None)
Quarter: 2012Q1

REPORT INFORMATION
  Report Type: 
  Country: None (occurrence: None)
  Receive Date: 20120212
  Receipt Date: 20120203
  Transmission Date: 20120608
  Serious: Yes (Death, Life-Threatening, Hospitalization)
  Sender: FDA-Public Use
  Company Number: FR-BRISTOL-MYERS SQUIBB COMPANY-16385692

PATIENT
  Age: 66 Year
  Sex: Male

DRUGS (9)
  1. IRBESARTAN [Suspect]
     Route: 048
  2. REPAGLINIDE [Suspect]
     Route: 048
  3. HYDREA [Suspect]
     Route: 048
     Dates: start: 20111230, end: 20120104
  4. INDAPAMIDE [Suspect]
     Route: 048
  5. LEVOTHYROXINE SODIUM [Suspect]
  6. VERAPAMIL [Suspect]
     Dosage: VERAPAMIL RATIOPHARM
     Route: 048
  7. EZETIMIBE [Suspect]
     Dosage: 1DF=10MG/40MG
     Route: 048
  8. PREVISCAN [Suspect]
     Dosage: 0.5 TAB 2 PER WEEK.
     Route: 048
  9. SYMBICORT [Suspect]
     Dosage: SYMBICORT TURBUHALER,1DF=200/6 MICRO G.
     Route: 055

REACTIONS (14)
  - THROMBOCYTOPENIA [None]
  - TOXOPLASMOSIS [None]
  - INFLAMMATION [None]
  - PERICARDIAL EFFUSION [None]
  - PLEURAL EFFUSION [None]
  - RENAL FAILURE CHRONIC [None]
  - CARDIOGENIC SHOCK [None]
  - LEUKOPENIA [None]
  - LEUKOCYTOCLASTIC VASCULITIS [None]
  - CYTOLYTIC HEPATITIS [None]
  - HYPOTENSION [None]
  - LUNG INFECTION [None]
  - EOSINOPHILIA [None]
  - ACUTE RESPIRATORY DISTRESS SYNDROME [None]
